FAERS Safety Report 23561523 (Version 1)
Quarter: 2024Q1

REPORT INFORMATION
  Report Type: Spontaneous
  Country: CA (occurrence: CA)
  Receive Date: 20240225
  Receipt Date: 20240225
  Transmission Date: 20240410
  Serious: Yes (Other)
  Sender: FDA-Public Use
  Company Number: CA-TEVA-VS-3159947

PATIENT
  Age: 17 Year
  Sex: Male

DRUGS (2)
  1. LOSARTAN [Suspect]
     Active Substance: LOSARTAN
     Indication: Stiff skin syndrome
     Route: 065
  2. LOSARTAN [Suspect]
     Active Substance: LOSARTAN
     Indication: Stiff skin syndrome
     Route: 048

REACTIONS (3)
  - Disease progression [Recovering/Resolving]
  - Stiff skin syndrome [Recovering/Resolving]
  - Product use in unapproved indication [Recovering/Resolving]
